FAERS Safety Report 13820542 (Version 2)
Quarter: 2017Q4

REPORT INFORMATION
  Report Type: Spontaneous
  Country: US (occurrence: US)
  Receive Date: 20170801
  Receipt Date: 20171106
  Transmission Date: 20180320
  Serious: No
  Sender: FDA-Public Use
  Company Number: US-JNJFOC-20170619710

PATIENT
  Age: 26 Year
  Sex: Female

DRUGS (1)
  1. ORTHO TRI CYCLEN LO [Suspect]
     Active Substance: ETHINYL ESTRADIOL\NORGESTIMATE
     Indication: PRODUCT USED FOR UNKNOWN INDICATION
     Route: 048

REACTIONS (2)
  - Product odour abnormal [Not Recovered/Not Resolved]
  - Poor quality drug administered [Not Recovered/Not Resolved]

NARRATIVE: CASE EVENT DATE: 2017
